FAERS Safety Report 12452565 (Version 1)
Quarter: 2016Q2

REPORT INFORMATION
  Report Type: Spontaneous
  Country: GB (occurrence: GB)
  Receive Date: 20160609
  Receipt Date: 20160609
  Transmission Date: 20160815
  Serious: Yes (Life-Threatening)
  Sender: FDA-Public Use
  Company Number: GB-JNJFOC-20160605135

PATIENT
  Age: 62 Year
  Sex: Female
  Weight: 66.6 kg

DRUGS (1)
  1. STELARA [Suspect]
     Active Substance: USTEKINUMAB
     Indication: PSORIASIS
     Dosage: DOSE: 45 UNSPECIFIED UNITS
     Route: 058
     Dates: start: 20130809

REACTIONS (1)
  - Idiopathic pulmonary fibrosis [Unknown]
